FAERS Safety Report 5936224-1 (Version None)
Quarter: 2008Q4

REPORT INFORMATION
  Report Type: 
  Country: None (occurrence: None)
  Receive Date: 20081030
  Receipt Date: 20071026
  Transmission Date: 20090506
  Serious: No
  Sender: FDA-Public Use
  Company Number: A0690085A

PATIENT
  Age: 60 Year
  Sex: Female

DRUGS (1)
  1. SEREVENT [Suspect]
     Indication: ASTHMA
     Route: 055
     Dates: start: 20030101

REACTIONS (2)
  - GLOSSODYNIA [None]
  - PARAESTHESIA ORAL [None]
